FAERS Safety Report 8838754 (Version 2)
Quarter: 2013Q1

REPORT INFORMATION
  Report Type: Spontaneous
  Country: US (occurrence: US)
  Receive Date: 20121012
  Receipt Date: 20130103
  Transmission Date: 20140127
  Serious: Yes (Other)
  Sender: FDA-Public Use
  Company Number: CHPA2011US12024

PATIENT
  Age: 87 Year
  Sex: Female

DRUGS (2)
  1. VOLTAREN GEL [Suspect]
     Indication: ARTHRITIS
     Dosage: UNK, ONCE PER DAY
     Route: 061
     Dates: start: 2010
  2. ACETYLSALICYLIC ACID [Suspect]
     Dosage: 325 MG, UNK

REACTIONS (6)
  - Oedema peripheral [Not Recovered/Not Resolved]
  - Erythema [Recovered/Resolved]
  - Pruritus [Recovered/Resolved]
  - Drug administered at inappropriate site [Unknown]
  - Wrong technique in drug usage process [Unknown]
  - Underdose [Unknown]
